FAERS Safety Report 18769253 (Version 2)
Quarter: 2021Q1

REPORT INFORMATION
  Report Type: Report from Study
  Country: KR (occurrence: KR)
  Receive Date: 20210121
  Receipt Date: 20210218
  Transmission Date: 20210419
  Serious: Yes (Other)
  Sender: FDA-Public Use
  Company Number: KR-AMGEN-KORNI2021008881

PATIENT
  Age: 74 Year
  Sex: Female
  Weight: 51.1 kg

DRUGS (21)
  1. CARFILZOMIB [Suspect]
     Active Substance: CARFILZOMIB
     Indication: PLASMA CELL MYELOMA
     Dosage: 23.4 MILLIGRAM
     Route: 042
     Dates: start: 20200423
  2. TRAST [Concomitant]
     Dosage: 48 MILLIGRAM
     Dates: start: 20200425
  3. DICAMAX?D [Concomitant]
     Active Substance: CALCIUM CARBONATE\CHOLECALCIFEROL
     Dosage: 1 UNK
     Dates: start: 20180724
  4. SEPTRIN [Concomitant]
     Active Substance: SULFAMETHOXAZOLE\TRIMETHOPRIM
     Dosage: 1 UNK
     Dates: start: 20200423
  5. HEXIDINE [Concomitant]
     Active Substance: CHLORHEXIDINE
     Dosage: 200 MILLILITER
     Dates: start: 20200617
  6. DICLOMED [DICLOFENAC] [Concomitant]
     Dosage: 200 MILLILITER
     Dates: start: 20200617
  7. HYALUMINI [Concomitant]
     Dosage: 0.5 MILLILITER
     Dates: start: 20200527
  8. DIQUAS S [Concomitant]
     Dosage: 0.4 MILLILITER
     Dates: start: 20200527
  9. CRAVIT [Concomitant]
     Active Substance: LEVOFLOXACIN
     Dosage: 1 UNK
     Dates: start: 20200812, end: 20201007
  10. MGO [Concomitant]
     Active Substance: MAGNESIUM OXIDE
     Dosage: 1 UNK
     Dates: start: 20200523
  11. ZOYLEX [ACICLOVIR SODIUM] [Concomitant]
     Dosage: 400 MILLIGRAM
     Dates: start: 20200423
  12. LENALIDOMIDE [Concomitant]
     Active Substance: LENALIDOMIDE
     Indication: PLASMA CELL MYELOMA
     Dosage: 315 MILLIGRAM
     Dates: start: 20200902
  13. AMARYL [Concomitant]
     Active Substance: GLIMEPIRIDE
     Dosage: 4 MILLIGRAM
     Dates: start: 20190910
  14. MEGACE F [Concomitant]
     Dosage: 5 MILLILITER
     Dates: start: 20200621, end: 20201002
  15. DEXAMETHASONE. [Concomitant]
     Active Substance: DEXAMETHASONE
     Indication: PLASMA CELL MYELOMA
     Dosage: 20 MILLIGRAM
     Dates: start: 20200902, end: 20200917
  16. DIABEX [Concomitant]
     Active Substance: METFORMIN HYDROCHLORIDE
     Dosage: 500 MILLIGRAM
     Dates: start: 20190731
  17. CHLORPHENIRAMINE [CHLORPHENAMINE] [Concomitant]
     Active Substance: CHLORPHENIRAMINE
     Dosage: 1 UNK
     Dates: start: 20200819, end: 20200819
  18. ASPIRIN [ACETYLSALICYLIC ACID] [Concomitant]
     Active Substance: ASPIRIN
     Dosage: 100 MILLIGRAM
     Dates: start: 20200423
  19. DUPHALAC EASY [Concomitant]
     Active Substance: LACTULOSE
     Dosage: 15 MILLILITER
     Dates: start: 20200523
  20. PRC [Concomitant]
     Dosage: 400 MILLILITER
     Dates: start: 20200818, end: 20200819
  21. MAXICLAN [Concomitant]
     Dosage: 1 UNK
     Dates: start: 20200826, end: 20200901

REACTIONS (1)
  - Neurotoxicity [Not Recovered/Not Resolved]

NARRATIVE: CASE EVENT DATE: 20200916
